FAERS Safety Report 9293949 (Version 1)
Quarter: 2013Q1

REPORT INFORMATION
  Report Type: Spontaneous
  Country: US (occurrence: None)
  Receive Date: 20121227
  Receipt Date: 20121227
  Transmission Date: 20140127
  Serious: Yes (Other)
  Sender: FDA-Public Use
  Company Number: PHEH2012US005185

PATIENT
  Age: 9 Year
  Sex: Female
  Weight: 33 kg

DRUGS (4)
  1. EXJADE [Suspect]
     Indication: SICKLE CELL ANAEMIA
     Route: 048
     Dates: start: 201002
  2. DESFERAL [Concomitant]
  3. VITAMIN C [Concomitant]
  4. TRANSFUSIONS [Concomitant]

REACTIONS (3)
  - Blood iron increased [None]
  - Wrong technique in drug usage process [None]
  - Serum ferritin increased [None]
